FAERS Safety Report 11786300 (Version 1)
Quarter: 2015Q4

REPORT INFORMATION
  Report Type: Spontaneous
  Country: ES (occurrence: ES)
  Receive Date: 20151130
  Receipt Date: 20151130
  Transmission Date: 20160305
  Serious: Yes (Other)
  Sender: FDA-Public Use
  Company Number: ES-PFIZER INC-2015356800

PATIENT
  Age: 13 Year
  Sex: Male

DRUGS (2)
  1. GENOTONORM [Suspect]
     Active Substance: SOMATROPIN
     Indication: GROWTH HORMONE DEFICIENCY
     Dosage: 1 MG, SIX DAYS PER WEEK
     Route: 058
     Dates: start: 20141103, end: 201510
  2. CONCERTA [Concomitant]
     Active Substance: METHYLPHENIDATE HYDROCHLORIDE
     Indication: ATTENTION DEFICIT/HYPERACTIVITY DISORDER
     Dosage: 36 MG, DAILY
     Dates: start: 2010

REACTIONS (1)
  - Scoliosis [Unknown]
